FAERS Safety Report 6775943-4 (Version None)
Quarter: 2010Q2

REPORT INFORMATION
  Report Type: 
  Country: None (occurrence: None)
  Receive Date: 20100617
  Receipt Date: 20100610
  Transmission Date: 20101027
  Serious: Yes (Hospitalization)
  Sender: FDA-Public Use
  Company Number: JP-ABBOTT-10P-087-0630586-00

PATIENT
  Sex: Male
  Weight: 44 kg

DRUGS (11)
  1. CLARITHROMYCIN [Suspect]
     Indication: MYCOPLASMA INFECTION
     Route: 048
     Dates: start: 20091207, end: 20091214
  2. FLUMARIN [Suspect]
     Indication: DRUG USE FOR UNKNOWN INDICATION
     Route: 042
     Dates: start: 20091210, end: 20091214
  3. ZITHROMAX [Suspect]
     Indication: DRUG USE FOR UNKNOWN INDICATION
     Route: 048
     Dates: start: 20091107, end: 20091124
  4. MINOCYCLINE HCL [Suspect]
     Indication: DRUG USE FOR UNKNOWN INDICATION
     Route: 065
     Dates: start: 20091225, end: 20091230
  5. COTRIM [Suspect]
     Indication: DRUG USE FOR UNKNOWN INDICATION
     Dosage: 2T BID
     Route: 065
     Dates: start: 20091230, end: 20100108
  6. FLOMOX [Concomitant]
     Indication: DRUG USE FOR UNKNOWN INDICATION
     Route: 048
     Dates: start: 20091125, end: 20091127
  7. TAMIFLU [Concomitant]
     Indication: INFLUENZA
     Route: 048
     Dates: start: 20091115, end: 20091118
  8. MUCOSOLVAN [Concomitant]
     Indication: DRUG USE FOR UNKNOWN INDICATION
     Route: 048
     Dates: start: 20091207, end: 20091217
  9. ARASENA A OINT [Concomitant]
     Indication: DRUG USE FOR UNKNOWN INDICATION
     Dosage: Q.S.
     Route: 061
     Dates: start: 20091210
  10. RINDERON VG [Concomitant]
     Indication: DRUG USE FOR UNKNOWN INDICATION
     Dosage: Q.S.
     Route: 061
     Dates: start: 20091210
  11. PROPETO [Concomitant]
     Indication: DRUG USE FOR UNKNOWN INDICATION
     Route: 061
     Dates: start: 20091214

REACTIONS (3)
  - LEUKOPENIA [None]
  - LIVER DISORDER [None]
  - PYREXIA [None]
